FAERS Safety Report 25107289 (Version 2)
Quarter: 2025Q2

REPORT INFORMATION
  Report Type: Spontaneous
  Country: US (occurrence: US)
  Receive Date: 20250321
  Receipt Date: 20250424
  Transmission Date: 20250716
  Serious: No
  Sender: ABBVIE
  Company Number: US-ABBVIE-6188979

PATIENT
  Age: 43 Year
  Sex: Female
  Weight: 78.925 kg

DRUGS (8)
  1. QULIPTA [Suspect]
     Active Substance: ATOGEPANT
     Indication: Migraine with aura
     Route: 048
     Dates: start: 202405
  2. ATIVAN [Concomitant]
     Active Substance: LORAZEPAM
     Indication: Post-traumatic stress disorder
  3. PAROXETINE [Concomitant]
     Active Substance: PAROXETINE
     Indication: Sleep terror
  4. DULOXETINE [Concomitant]
     Active Substance: DULOXETINE
     Indication: Fibromyalgia
  5. RIZATRIPTAN [Concomitant]
     Active Substance: RIZATRIPTAN
     Indication: Migraine with aura
  6. OMEPRAZOLE [Concomitant]
     Active Substance: OMEPRAZOLE
     Indication: Gastrooesophageal reflux disease
  7. AMITRIPTYLINE [Concomitant]
     Active Substance: AMITRIPTYLINE
     Indication: Neuralgia
  8. MIDODRINE [Concomitant]
     Active Substance: MIDODRINE
     Indication: Cardiac disorder

REACTIONS (1)
  - Nausea [Recovered/Resolved]

NARRATIVE: CASE EVENT DATE: 20240501
